FAERS Safety Report 6509778-4 (Version None)
Quarter: 2009Q4

REPORT INFORMATION
  Report Type: 
  Country: None (occurrence: None)
  Receive Date: 20091221
  Receipt Date: 20091221
  Transmission Date: 20100525
  Serious: Yes (Hospitalization)
  Sender: FDA-Public Use
  Company Number: None

PATIENT
  Age: 42 Year
  Sex: Male
  Weight: 83 kg

DRUGS (1)
  1. VITAMIN C [Suspect]
     Dosage: 2000 MG ORAL TWICE DAILY
     Route: 048

REACTIONS (1)
  - ARTHRODESIS [None]
